FAERS Safety Report 9825333 (Version 1)
Quarter: 2014Q1

REPORT INFORMATION
  Report Type: Spontaneous
  Country: US (occurrence: US)
  Receive Date: 20140117
  Receipt Date: 20140117
  Transmission Date: 20141002
  Serious: No
  Sender: FDA-Public Use
  Company Number: US-ORAPHARMA-QUINORA-2012-003

PATIENT
  Sex: 0

DRUGS (1)
  1. ARESTIN [Suspect]
     Indication: GINGIVITIS
     Dosage: UNK DF, UNK
     Route: 048
     Dates: start: 20111205, end: 20111205

REACTIONS (2)
  - Gingival pain [Recovered/Resolved]
  - Odynophagia [Not Recovered/Not Resolved]
